FAERS Safety Report 20627383 (Version 1)
Quarter: 2022Q1

REPORT INFORMATION
  Report Type: Spontaneous
  Country: US (occurrence: None)
  Receive Date: 20220323
  Receipt Date: 20220323
  Transmission Date: 20220423
  Serious: Yes (Hospitalization)
  Sender: FDA-Public Use
  Company Number: None

PATIENT
  Sex: Male
  Weight: 74 kg

DRUGS (4)
  1. CISPLATIN [Suspect]
     Active Substance: CISPLATIN
  2. IFOSFAMIDE [Concomitant]
     Active Substance: IFOSFAMIDE
  3. TAXOL [Concomitant]
     Active Substance: PACLITAXEL
  4. G-CSF (FILGRASTIM, AMGEN) [Concomitant]

REACTIONS (4)
  - Pyrexia [None]
  - Malaise [None]
  - Heart rate increased [None]
  - Neutrophil count decreased [None]

NARRATIVE: CASE EVENT DATE: 20220320
